FAERS Safety Report 5945993-6 (Version None)
Quarter: 2008Q4

REPORT INFORMATION
  Report Type: 
  Country: None (occurrence: None)
  Receive Date: 20081106
  Receipt Date: 20081024
  Transmission Date: 20090506
  Serious: Yes (Other)
  Sender: FDA-Public Use
  Company Number: 2008002776

PATIENT
  Age: 65 Year
  Sex: Male

DRUGS (3)
  1. TARCEVA [Suspect]
     Indication: LUNG ADENOCARCINOMA
     Dosage: (150 MG), ORAL; (100 MG), ORAL
     Route: 048
     Dates: start: 20080101
  2. TARCEVA [Suspect]
     Indication: LUNG ADENOCARCINOMA
     Dosage: (150 MG), ORAL; (100 MG), ORAL
     Route: 048
     Dates: start: 20080101
  3. ANTIBIOTICS NOS [Suspect]
     Dates: start: 20080101

REACTIONS (4)
  - BLINDNESS [None]
  - DERMATITIS ACNEIFORM [None]
  - DIARRHOEA [None]
  - VISION BLURRED [None]
